FAERS Safety Report 17236836 (Version 1)
Quarter: 2020Q1

REPORT INFORMATION
  Report Type: Spontaneous
  Country: US (occurrence: US)
  Receive Date: 20200106
  Receipt Date: 20200106
  Transmission Date: 20200409
  Serious: No
  Sender: FDA-Public Use
  Company Number: US-BAYER-2019-236812

PATIENT
  Age: 54 Year
  Sex: Male

DRUGS (4)
  1. ALLERTEC [Suspect]
     Active Substance: CETIRIZINE HYDROCHLORIDE
  2. ZERT-OD [Suspect]
     Active Substance: SERTRALINE HYDROCHLORIDE
  3. CLARITIN [Suspect]
     Active Substance: LORATADINE
     Indication: HYPERSENSITIVITY
     Dosage: 1 DF
     Route: 048
     Dates: start: 20191225
  4. CLARITIN [Suspect]
     Active Substance: LORATADINE
     Indication: NASOPHARYNGITIS

REACTIONS (1)
  - Drug ineffective [Unknown]

NARRATIVE: CASE EVENT DATE: 20191225
